FAERS Safety Report 19469368 (Version 1)
Quarter: 2021Q2

REPORT INFORMATION
  Report Type: Spontaneous
  Country: PL (occurrence: PL)
  Receive Date: 20210628
  Receipt Date: 20210628
  Transmission Date: 20210717
  Serious: Yes (Other)
  Sender: FDA-Public Use
  Company Number: PL-TEVA-2021-PL-1927590

PATIENT
  Age: 65 Year
  Sex: Female

DRUGS (2)
  1. GAZYVARO [Suspect]
     Active Substance: OBINUTUZUMAB
     Indication: FOLLICULAR LYMPHOMA
     Route: 042
     Dates: start: 202006, end: 202101
  2. BENDAMUSTINE HYDROCHLORIDE. [Suspect]
     Active Substance: BENDAMUSTINE HYDROCHLORIDE
     Indication: FOLLICULAR LYMPHOMA
     Route: 042
     Dates: start: 202006, end: 202101

REACTIONS (7)
  - Cytopenia [Unknown]
  - Herpes zoster [Unknown]
  - Arrhythmia [Unknown]
  - COVID-19 [Unknown]
  - Off label use [Unknown]
  - Diarrhoea infectious [Unknown]
  - Product use issue [Unknown]

NARRATIVE: CASE EVENT DATE: 202006
